FAERS Safety Report 9127734 (Version 1)
Quarter: 2013Q1

REPORT INFORMATION
  Report Type: Spontaneous
  Country: US (occurrence: US)
  Receive Date: 20130122
  Receipt Date: 20130122
  Transmission Date: 20140127
  Serious: Yes (Other)
  Sender: FDA-Public Use
  Company Number: US-SHIRE-ALL1-2013-00174

PATIENT
  Age: 41 Year
  Sex: Female

DRUGS (2)
  1. VYVANSE [Suspect]
     Indication: PRODUCT USED FOR UNKNOWN INDICATION
     Dosage: 30 MG, UNKNOWN
     Route: 048
  2. THYROID THERAPY [Concomitant]
     Indication: HYPOTHYROIDISM
     Dosage: UNK, UNKNOWN
     Route: 065

REACTIONS (6)
  - Drug dependence [Unknown]
  - Tobacco user [Unknown]
  - Fatigue [Unknown]
  - Hyperhidrosis [Unknown]
  - Euphoric mood [Unknown]
  - Inappropriate schedule of drug administration [Unknown]
